FAERS Safety Report 8617083-5 (Version None)
Quarter: 2012Q3

REPORT INFORMATION
  Report Type: 
  Country: None (occurrence: None)
  Receive Date: 20120823
  Receipt Date: 20120815
  Transmission Date: 20120928
  Serious: No
  Sender: FDA-Public Use
  Company Number: US-009507513-1208USA007082

PATIENT

DRUGS (2)
  1. JANUVIA [Suspect]
     Indication: DIABETES MELLITUS
     Dosage: UNK
     Route: 048
     Dates: start: 20120701, end: 20120815
  2. METFORMIN HCL [Concomitant]

REACTIONS (3)
  - ABDOMINAL PAIN [None]
  - VOMITING [None]
  - NAUSEA [None]
